FAERS Safety Report 7279737-5 (Version None)
Quarter: 2011Q1

REPORT INFORMATION
  Report Type: 
  Country: None (occurrence: None)
  Receive Date: 20110208
  Receipt Date: 20110128
  Transmission Date: 20110831
  Serious: Yes (Hospitalization, Other)
  Sender: FDA-Public Use
  Company Number: PHHY2010BR36631

PATIENT
  Sex: Female

DRUGS (2)
  1. PARIET [Concomitant]
     Indication: HIATUS HERNIA
     Dosage: UNK
     Route: 048
  2. DIOVAN HCT [Suspect]
     Indication: HYPERTENSION
     Dosage: 1 TABLET (160/12.5 MG) DAILY
     Route: 048

REACTIONS (5)
  - LOSS OF CONSCIOUSNESS [None]
  - CONVULSION [None]
  - STRESS [None]
  - ARRHYTHMIA [None]
  - SOMNOLENCE [None]
